FAERS Safety Report 14752093 (Version 3)
Quarter: 2018Q2

REPORT INFORMATION
  Report Type: Spontaneous
  Country: US (occurrence: US)
  Receive Date: 20180412
  Receipt Date: 20180420
  Transmission Date: 20180711
  Serious: Yes (Other)
  Sender: FDA-Public Use
  Company Number: US-PFIZER INC-2018144976

PATIENT
  Age: 53 Year
  Sex: Male

DRUGS (5)
  1. MILRINONE [Suspect]
     Active Substance: MILRINONE
     Indication: CARDIOMYOPATHY
     Dosage: UNK
     Route: 042
  2. TPA [Concomitant]
     Active Substance: ALTEPLASE
     Dosage: UNK
     Route: 042
  3. PHENYLEPHRINE [Concomitant]
     Active Substance: PHENYLEPHRINE\PHENYLEPHRINE HYDROCHLORIDE
     Dosage: UNK
  4. NEOSYNEPHRINE [Concomitant]
     Active Substance: PHENYLEPHRINE HYDROCHLORIDE
     Dosage: UNK
  5. CARDIZEM [Concomitant]
     Active Substance: DILTIAZEM HYDROCHLORIDE
     Dosage: UNK
     Route: 041

REACTIONS (4)
  - Cardiomyopathy [Recovering/Resolving]
  - Hypotension [Recovering/Resolving]
  - Tachycardia [Recovering/Resolving]
  - Condition aggravated [Recovering/Resolving]
